FAERS Safety Report 9036562 (Version 1)
Quarter: 2013Q1

REPORT INFORMATION
  Report Type: Spontaneous
  Country: US (occurrence: None)
  Receive Date: 20130123
  Receipt Date: 20130123
  Transmission Date: 20140127
  Serious: Yes (Disabling)
  Sender: FDA-Public Use
  Company Number: None

PATIENT
  Age: 55 Year
  Sex: Female
  Weight: 77.11 kg

DRUGS (1)
  1. SEROQUEL [Suspect]
     Dates: start: 1961, end: 1979

REACTIONS (2)
  - Amnesia [None]
  - Victim of sexual abuse [None]
